FAERS Safety Report 21824673 (Version 1)
Quarter: 2023Q1

REPORT INFORMATION
  Report Type: Report from Study
  Country: US (occurrence: US)
  Receive Date: 20230105
  Receipt Date: 20230105
  Transmission Date: 20230418
  Serious: No
  Sender: FDA-Public Use
  Company Number: US-ABBVIE-4219562

PATIENT
  Age: 52 Year
  Sex: Female

DRUGS (3)
  1. SKYRIZI [Suspect]
     Active Substance: RISANKIZUMAB-RZAA
     Indication: Product used for unknown indication
     Route: 058
  2. Moderna [Concomitant]
     Indication: COVID-19 immunisation
     Route: 058
     Dates: start: 20210321
  3. Moderna [Concomitant]
     Indication: COVID-19 immunisation
     Dates: start: 20210414, end: 20210414

REACTIONS (2)
  - Influenza [Recovering/Resolving]
  - Pain [Unknown]

NARRATIVE: CASE EVENT DATE: 20221128
